FAERS Safety Report 15954663 (Version 3)
Quarter: 2019Q1

REPORT INFORMATION
  Report Type: Spontaneous
  Country: CH (occurrence: CH)
  Receive Date: 20190213
  Receipt Date: 20190321
  Transmission Date: 20190417
  Serious: Yes (Other)
  Sender: FDA-Public Use
  Company Number: CH-BIOGEN-2019BI00696082

PATIENT
  Age: 20 Year
  Sex: Male

DRUGS (3)
  1. SPINRAZA [Suspect]
     Active Substance: NUSINERSEN
     Route: 050
  2. SPINRAZA [Suspect]
     Active Substance: NUSINERSEN
     Indication: SPINAL MUSCULAR ATROPHY
     Route: 050
  3. OTRIVIN [Concomitant]
     Active Substance: XYLOMETAZOLINE
     Indication: VIRAL RHINITIS
     Route: 050

REACTIONS (1)
  - Electrocardiogram QT prolonged [Unknown]
